FAERS Safety Report 20665346 (Version 3)
Quarter: 2024Q1

REPORT INFORMATION
  Report Type: Spontaneous
  Country: RU (occurrence: RU)
  Receive Date: 20220401
  Receipt Date: 20240221
  Transmission Date: 20240410
  Serious: Yes (Hospitalization)
  Sender: FDA-Public Use
  Company Number: RU-JNJFOC-20220364819

PATIENT
  Age: 49 Year
  Sex: Female
  Weight: 91 kg

DRUGS (4)
  1. TRABECTEDIN [Suspect]
     Active Substance: TRABECTEDIN
     Indication: Myxoid liposarcoma
     Dates: start: 202010
  2. BISOPROLOL [Concomitant]
     Active Substance: BISOPROLOL\BISOPROLOL FUMARATE
  3. XARELTO [Concomitant]
     Active Substance: RIVAROXABAN
  4. DIOSMIN\HESPERIDIN [Concomitant]
     Active Substance: DIOSMIN\HESPERIDIN

REACTIONS (4)
  - Abscess soft tissue [Recovered/Resolved]
  - Leukopenia [Unknown]
  - Febrile neutropenia [Unknown]
  - C-reactive protein increased [Unknown]

NARRATIVE: CASE EVENT DATE: 20210119
